FAERS Safety Report 8793959 (Version 2)
Quarter: 2012Q4

REPORT INFORMATION
  Report Type: Report from Study
  Country: US (occurrence: US)
  Receive Date: 20120918
  Receipt Date: 20121109
  Transmission Date: 20130627
  Serious: Yes (Hospitalization)
  Sender: FDA-Public Use
  Company Number: US-BIOGENIDEC-2012BI037532

PATIENT
  Age: 60 Year
  Sex: Male

DRUGS (10)
  1. TYSABRI [Suspect]
     Indication: MULTIPLE SCLEROSIS
     Route: 042
     Dates: start: 20080110
  2. ALLOPURINOL [Concomitant]
     Route: 048
  3. AMBIEN [Concomitant]
     Route: 048
  4. AMPHETAMINE-DEXTROAMPHETAMINE [Concomitant]
     Indication: FATIGUE
     Route: 048
     Dates: start: 20120911
  5. AMPYRA EXTENDED RELEASE [Concomitant]
     Route: 048
  6. FINASTERIDE [Concomitant]
     Route: 048
  7. KLONOPIN [Concomitant]
     Route: 048
  8. MIRALAX [Concomitant]
     Route: 048
     Dates: start: 20120911
  9. VICODIN [Concomitant]
     Indication: PAIN
  10. VIIBRYD [Concomitant]
     Route: 048
     Dates: start: 20120409

REACTIONS (1)
  - Thyroid neoplasm [Recovered/Resolved]
